FAERS Safety Report 15402170 (Version 1)
Quarter: 2018Q3

REPORT INFORMATION
  Report Type: Spontaneous
  Country: US (occurrence: US)
  Receive Date: 20180914
  Receipt Date: 20180914
  Transmission Date: 20181010
  Serious: No
  Sender: FDA-Public Use
  Company Number: None

PATIENT
  Age: 68 Year
  Sex: Male
  Weight: 113.4 kg

DRUGS (1)
  1. ELMIRON [Suspect]
     Active Substance: PENTOSAN POLYSULFATE SODIUM
     Indication: CYSTITIS
     Dosage: ?          QUANTITY:3 CAPS/DAY;OTHER FREQUENCY:2HRS AFTER MEAL;?
     Route: 048
     Dates: start: 20180707, end: 20180811

REACTIONS (1)
  - Rash [None]

NARRATIVE: CASE EVENT DATE: 20180809
